FAERS Safety Report 10475908 (Version 1)
Quarter: 2014Q3

REPORT INFORMATION
  Report Type: Spontaneous
  Country: US (occurrence: US)
  Receive Date: 20140925
  Receipt Date: 20140925
  Transmission Date: 20150326
  Serious: No
  Sender: FDA-Public Use
  Company Number: US-GLAXOSMITHKLINE-A1070859A

PATIENT
  Age: 66 Year
  Sex: Male
  Weight: 125 kg

DRUGS (17)
  1. BENICAR [Concomitant]
     Active Substance: OLMESARTAN MEDOXOMIL
  2. LIPITOR [Concomitant]
     Active Substance: ATORVASTATIN CALCIUM
  3. VITAMIN D [Concomitant]
     Active Substance: CHOLECALCIFEROL
  4. FINASTERIDE. [Concomitant]
     Active Substance: FINASTERIDE
  5. FENOFIBRATE. [Concomitant]
     Active Substance: FENOFIBRATE
  6. VITAMIN B12 [Concomitant]
     Active Substance: CYANOCOBALAMIN
  7. DEXILANT [Concomitant]
     Active Substance: DEXLANSOPRAZOLE
  8. CABERGOLINE. [Concomitant]
     Active Substance: CABERGOLINE
  9. PROAIR HFA [Suspect]
     Active Substance: ALBUTEROL SULFATE
     Indication: ASTHMA
  10. HYDROCORTISON [Concomitant]
     Active Substance: HYDROCORTISONE
  11. HUMATROPE [Concomitant]
     Active Substance: SOMATROPIN
  12. MULTIVITAMIN [Concomitant]
     Active Substance: VITAMINS
  13. CEFTIN [Suspect]
     Active Substance: CEFUROXIME AXETIL
     Indication: BRONCHITIS
     Route: 065
     Dates: start: 20140405, end: 20140406
  14. NIACIN. [Concomitant]
     Active Substance: NIACIN
  15. SINGULAIR [Concomitant]
     Active Substance: MONTELUKAST SODIUM
  16. SYNTHROID [Concomitant]
     Active Substance: LEVOTHYROXINE SODIUM
  17. CALCIUM D [Concomitant]
     Active Substance: CALCIUM\VITAMIN D

REACTIONS (1)
  - Diarrhoea [Recovered/Resolved]

NARRATIVE: CASE EVENT DATE: 20140405
